FAERS Safety Report 6010042-0 (Version None)
Quarter: 2008Q4

REPORT INFORMATION
  Report Type: 
  Country: None (occurrence: None)
  Receive Date: 20081218
  Receipt Date: 20081209
  Transmission Date: 20090506
  Serious: Yes (Other)
  Sender: FDA-Public Use
  Company Number: US-CELGENEUS-163-20785-08120690

PATIENT
  Sex: Female

DRUGS (2)
  1. THALOMID [Suspect]
     Indication: MULTIPLE MYELOMA
     Route: 048
     Dates: start: 20080929, end: 20081101
  2. THALOMID [Suspect]
     Dosage: 100MG - 200MG
     Route: 048
     Dates: start: 20070330, end: 20080401

REACTIONS (1)
  - LIVER INJURY [None]
